FAERS Safety Report 17557784 (Version 1)
Quarter: 2020Q1

REPORT INFORMATION
  Report Type: Spontaneous
  Country: US (occurrence: US)
  Receive Date: 20200319
  Receipt Date: 20200319
  Transmission Date: 20200409
  Serious: No
  Sender: FDA-Public Use
  Company Number: US-CIPLA LTD.-2019US05941

PATIENT

DRUGS (1)
  1. NABUMETONE. [Suspect]
     Active Substance: NABUMETONE
     Indication: COMPLEX REGIONAL PAIN SYNDROME
     Dosage: UNK
     Route: 065
     Dates: start: 2015

REACTIONS (2)
  - Off label use [Unknown]
  - Product use in unapproved indication [Unknown]
